FAERS Safety Report 13246264 (Version 1)
Quarter: 2017Q1

REPORT INFORMATION
  Report Type: Spontaneous
  Country: US (occurrence: US)
  Receive Date: 20170217
  Receipt Date: 20170217
  Transmission Date: 20170428
  Serious: No
  Sender: FDA-Public Use
  Company Number: US-ENDO PHARMACEUTICALS INC-2016-007270

PATIENT
  Age: 62 Year
  Sex: Female
  Weight: 97.51 kg

DRUGS (2)
  1. PHENTERMINE HCL TABLETS [Suspect]
     Active Substance: PHENTERMINE HYDROCHLORIDE
     Indication: HYPOTENSION
     Dosage: 37.5 MG, BID
     Route: 048
     Dates: start: 20161206
  2. PHENTERMINE HCL TABLETS [Suspect]
     Active Substance: PHENTERMINE HYDROCHLORIDE
     Indication: ASTHENIA

REACTIONS (5)
  - Drug dose omission [Unknown]
  - Off label use [Unknown]
  - Therapeutic response unexpected [Unknown]
  - Hypotension [Unknown]
  - Weight increased [Not Recovered/Not Resolved]

NARRATIVE: CASE EVENT DATE: 201612
